FAERS Safety Report 10718103 (Version 1)
Quarter: 2015Q1

REPORT INFORMATION
  Report Type: Spontaneous
  Country: FR (occurrence: FR)
  Receive Date: 20150117
  Receipt Date: 20150117
  Transmission Date: 20150721
  Serious: Yes (Hospitalization)
  Sender: FDA-Public Use
  Company Number: FR-ASTRAZENECA-2015SE02895

PATIENT
  Age: 37 Year
  Sex: Female

DRUGS (8)
  1. MOXYDAR [Suspect]
     Active Substance: ALUMINUM HYDROXIDE\ALUMINUM PHOSPHATE\GUAR GUM\MAGNESIUM HYDROXIDE
     Indication: ABDOMINAL PAIN
     Route: 065
  2. OMEPRAZOLE. [Suspect]
     Active Substance: OMEPRAZOLE
     Indication: ABDOMINAL PAIN
     Route: 048
  3. IPRAALOX [Suspect]
     Active Substance: PANTOPRAZOLE SODIUM
     Indication: ABDOMINAL PAIN
     Route: 065
  4. PARACETAMOL [Suspect]
     Active Substance: ACETAMINOPHEN
     Route: 065
     Dates: start: 201412
  5. SEVOFLURANE. [Suspect]
     Active Substance: SEVOFLURANE
     Dosage: ONCE/SINGLE ADMINISTRATION
     Route: 065
     Dates: start: 20141202
  6. RHOPHYLAC [Concomitant]
     Active Substance: HUMAN RHO(D) IMMUNE GLOBULIN
  7. DIPRIVAN [Suspect]
     Active Substance: PROPOFOL
     Dosage: ONCE/SINGLE ADMINISTRATION
     Route: 042
     Dates: start: 20141202
  8. SYNTOCINON [Suspect]
     Active Substance: OXYTOCIN
     Dosage: ONCE/SINGLE ADMINISTRATION
     Route: 065
     Dates: start: 20141202

REACTIONS (2)
  - Drug-induced liver injury [Unknown]
  - Hepatic necrosis [Unknown]

NARRATIVE: CASE EVENT DATE: 20141212
